FAERS Safety Report 6476625-9 (Version None)
Quarter: 2009Q4

REPORT INFORMATION
  Report Type: 
  Country: None (occurrence: None)
  Receive Date: 20091204
  Receipt Date: 20091204
  Transmission Date: 20100525
  Serious: No
  Sender: FDA-Public Use
  Company Number: None

PATIENT
  Sex: Female
  Weight: 111.5849 kg

DRUGS (1)
  1. REMICADE [Suspect]
     Indication: RHEUMATOID ARTHRITIS
     Dosage: 400 MG IV 0, 2WK, 6 WK, Q 8 WK
     Route: 042

REACTIONS (4)
  - CHEST DISCOMFORT [None]
  - CHEST PAIN [None]
  - DYSPNOEA [None]
  - INFUSION RELATED REACTION [None]
